FAERS Safety Report 10066824 (Version 1)
Quarter: 2014Q2

REPORT INFORMATION
  Report Type: Spontaneous
  Country: US (occurrence: US)
  Receive Date: 20140408
  Receipt Date: 20140408
  Transmission Date: 20141212
  Serious: Yes (Other)
  Sender: FDA-Public Use
  Company Number: US-009507513-1404USA003336

PATIENT
  Sex: Female

DRUGS (2)
  1. SINGULAIR [Suspect]
     Indication: ASTHMA
     Dosage: UNK
     Route: 048
     Dates: start: 2012, end: 2012
  2. PULMICORT [Concomitant]

REACTIONS (2)
  - Mood swings [Recovered/Resolved with Sequelae]
  - Overdose [Unknown]
